FAERS Safety Report 4870184-X (Version None)
Quarter: 2005Q4

REPORT INFORMATION
  Report Type: 
  Country: None (occurrence: None)
  Receive Date: 20051228
  Receipt Date: 20050929
  Transmission Date: 20060501
  Serious: Yes (Hospitalization)
  Sender: FDA-Public Use
  Company Number: 05-110

PATIENT
  Age: 60 Year
  Sex: Female

DRUGS (4)
  1. METOPROLOL TARTRATE [Suspect]
     Indication: HYPERTENSION
     Dosage: 1 TABLET 2X A DAY;
     Dates: start: 20050613, end: 20050927
  2. NORVASC [Concomitant]
  3. COZAAR [Concomitant]
  4. BETASAC [Concomitant]

REACTIONS (9)
  - ASTHENIA [None]
  - BLOOD PRESSURE INCREASED [None]
  - DIZZINESS [None]
  - DYSSTASIA [None]
  - HEADACHE [None]
  - HEART RATE INCREASED [None]
  - OCULAR HYPERAEMIA [None]
  - TREMOR [None]
  - VOMITING [None]
